FAERS Safety Report 21564874 (Version 1)
Quarter: 2022Q4

REPORT INFORMATION
  Report Type: Other
  Country: US (occurrence: None)
  Receive Date: 20221108
  Receipt Date: 20221108
  Transmission Date: 20230113
  Serious: Yes (Disabling)
  Sender: FDA-Public Use
  Company Number: US-ROCHE-3214470

PATIENT
  Age: 65 Year
  Sex: Female
  Weight: 72.640 kg

DRUGS (7)
  1. OCREVUS [Suspect]
     Active Substance: OCRELIZUMAB
     Indication: Multiple sclerosis
     Dosage: THEN 600 MG ONCE IN 6 MONTHS, (300MG ON DAY 2 VIA IV 300MG 2 WEEKS LATER, 600MG Q 6 MO START 6 MO AF
     Route: 042
  2. OCREVUS [Suspect]
     Active Substance: OCRELIZUMAB
     Indication: Nervous system disorder
  3. TECFIDERA [Concomitant]
     Active Substance: DIMETHYL FUMARATE
     Indication: Multiple sclerosis
  4. GABAPENTIN [Concomitant]
     Active Substance: GABAPENTIN
  5. ZOLPIDEM [Concomitant]
     Active Substance: ZOLPIDEM TARTRATE
  6. MODAFINIL [Concomitant]
     Active Substance: MODAFINIL
  7. ONDANSETRON [Concomitant]
     Active Substance: ONDANSETRON

REACTIONS (7)
  - Varicella virus test positive [Unknown]
  - Blood urea increased [Unknown]
  - Blood urea nitrogen/creatinine ratio increased [Unknown]
  - Hyporeflexia [Unknown]
  - Hyperreflexia [Unknown]
  - Headache [Unknown]
  - Cognitive disorder [Unknown]
